FAERS Safety Report 4986485-0 (Version None)
Quarter: 2006Q2

REPORT INFORMATION
  Report Type: 
  Country: None (occurrence: None)
  Receive Date: 20060428
  Receipt Date: 20060407
  Transmission Date: 20061013
  Serious: Yes (Other)
  Sender: FDA-Public Use
  Company Number: FR-ROCHE-443759

PATIENT

DRUGS (3)
  1. NICARDIPINE HCL [Suspect]
     Indication: HYPERTENSION
     Route: 064
  2. NICARDIPINE HCL [Suspect]
     Route: 064
  3. LABETALOL HCL [Concomitant]
     Indication: DRUG USE FOR UNKNOWN INDICATION

REACTIONS (8)
  - ABORTION INDUCED [None]
  - DRUG EXPOSURE DURING PREGNANCY [None]
  - FOETAL GROWTH RETARDATION [None]
  - FOETAL HAEMOGLOBIN DECREASED [None]
  - FOETAL MOVEMENTS DECREASED [None]
  - HYDROPS FOETALIS [None]
  - NUCLEAR MAGNETIC RESONANCE IMAGING BRAIN ABNORMAL [None]
  - STILLBIRTH [None]
